FAERS Safety Report 14210277 (Version 1)
Quarter: 2017Q4

REPORT INFORMATION
  Report Type: Spontaneous
  Country: ES (occurrence: ES)
  Receive Date: 20171121
  Receipt Date: 20171121
  Transmission Date: 20180321
  Serious: Yes (Hospitalization, Other)
  Sender: FDA-Public Use
  Company Number: ES-TOLMAR, INC.-2017ES015871

PATIENT
  Age: 68 Year
  Sex: Male

DRUGS (8)
  1. ZOLEDRONIC ACID [Concomitant]
     Active Substance: ZOLEDRONIC ACID
     Dosage: UNK
  2. ENZALUTAMIDE [Suspect]
     Active Substance: ENZALUTAMIDE
     Indication: HORMONE-REFRACTORY PROSTATE CANCER
     Dosage: UNK
     Route: 065
     Dates: start: 20170420
  3. FERROUS SULFATE. [Concomitant]
     Active Substance: FERROUS SULFATE
  4. OLMESARTAN [Concomitant]
     Active Substance: OLMESARTAN
  5. ELIGARD [Suspect]
     Active Substance: LEUPROLIDE ACETATE
     Indication: PRODUCT USED FOR UNKNOWN INDICATION
     Dosage: 45 MG, UNK
     Route: 065
     Dates: start: 201510
  6. ENALAPRIL [Concomitant]
     Active Substance: ENALAPRIL
  7. BICALUTAMIDE. [Suspect]
     Active Substance: BICALUTAMIDE
     Indication: PRODUCT USED FOR UNKNOWN INDICATION
     Dosage: 50 MG, UNK
     Route: 065
     Dates: start: 201510
  8. METFORMIN [Concomitant]
     Active Substance: METFORMIN HYDROCHLORIDE
     Dosage: UNK

REACTIONS (12)
  - Oedema peripheral [Unknown]
  - Malignant neoplasm progression [Unknown]
  - Diarrhoea [Unknown]
  - Gastroenteritis [Unknown]
  - Coccydynia [Unknown]
  - Leukocytosis [Unknown]
  - Haematuria [Unknown]
  - Vomiting [Unknown]
  - Fatigue [Unknown]
  - Erectile dysfunction [Unknown]
  - Discomfort [Unknown]
  - Pyrexia [Unknown]

NARRATIVE: CASE EVENT DATE: 20171103
